FAERS Safety Report 7586455-2 (Version None)
Quarter: 2011Q3

REPORT INFORMATION
  Report Type: 
  Country: None (occurrence: None)
  Receive Date: 20110701
  Receipt Date: 20110621
  Transmission Date: 20111222
  Serious: Yes (Other)
  Sender: FDA-Public Use
  Company Number: D0071887A

PATIENT
  Sex: Male

DRUGS (2)
  1. DARIFENACIN [Concomitant]
     Route: 065
  2. DUTASTERIDE/TAMSULOSIN HYDROCHLORIDE [Suspect]
     Route: 048

REACTIONS (1)
  - CIRCULATORY COLLAPSE [None]
